FAERS Safety Report 7594003-6 (Version None)
Quarter: 2011Q3

REPORT INFORMATION
  Report Type: 
  Country: None (occurrence: None)
  Receive Date: 20110706
  Receipt Date: 20110630
  Transmission Date: 20111222
  Serious: Yes (Hospitalization, Other)
  Sender: FDA-Public Use
  Company Number: US-PFIZER INC-2010006434

PATIENT
  Sex: Female

DRUGS (6)
  1. CHANTIX [Suspect]
     Indication: SMOKING CESSATION THERAPY
     Dosage: 0.5 MG/1 MG
     Dates: start: 20080819, end: 20080901
  2. TRAZODONE [Concomitant]
     Indication: INSOMNIA
     Dosage: UNK
     Dates: start: 20060824, end: 20081101
  3. LEXAPRO [Concomitant]
     Indication: DEPRESSION
     Dosage: UNK
     Dates: start: 20080301, end: 20090401
  4. BUSPAR [Concomitant]
     Indication: DEPRESSION
     Dosage: UNK
     Dates: start: 20060824, end: 20090312
  5. KLONOPIN [Concomitant]
     Indication: ANXIETY
     Dosage: UNK
     Dates: start: 20050527, end: 20081201
  6. SALBUTAMOL SULFATE [Concomitant]
     Indication: ASTHMA
     Dosage: UNK
     Dates: start: 20080819, end: 20090301

REACTIONS (5)
  - DEPRESSION [None]
  - INTENTIONAL OVERDOSE [None]
  - AGGRESSION [None]
  - SUICIDE ATTEMPT [None]
  - INSOMNIA [None]
